FAERS Safety Report 10428190 (Version 1)
Quarter: 2014Q3

REPORT INFORMATION
  Report Type: Spontaneous
  Country: US (occurrence: None)
  Receive Date: 20140829
  Receipt Date: 20140829
  Transmission Date: 20150326
  Serious: Yes (Other)
  Sender: FDA-Public Use
  Company Number: 2014-002467

PATIENT
  Age: 60 Year
  Sex: Female
  Weight: 97.5 kg

DRUGS (1)
  1. ESTRACE [Suspect]
     Active Substance: ESTRADIOL
     Indication: CYSTITIS
     Route: 067

REACTIONS (2)
  - Neuralgia [None]
  - Nerve injury [None]

NARRATIVE: CASE EVENT DATE: 2011
